FAERS Safety Report 6704100-2 (Version None)
Quarter: 2010Q2

REPORT INFORMATION
  Report Type: 
  Country: None (occurrence: None)
  Receive Date: 20100423
  Receipt Date: 20100215
  Transmission Date: 20101027
  Serious: No
  Sender: FDA-Public Use
  Company Number: ALL1-2010-00887

PATIENT
  Age: 56 Year
  Sex: Male
  Weight: 74.8 kg

DRUGS (6)
  1. VYVANSE [Suspect]
     Indication: ATTENTION DEFICIT/HYPERACTIVITY DISORDER
     Dosage: 70 MG, 1X/DAY;QD, ORAL
     Route: 048
     Dates: start: 20091201
  2. METFORMIN HCL [Concomitant]
  3. ELAVEIL /00002202/ [Concomitant]
  4. AMITRIPTYLINE HYDROCHLORIDE [Concomitant]
  5. LEXAPRO [Concomitant]
  6. VYTORIN [Concomitant]

REACTIONS (4)
  - ASTHENIA [None]
  - DEPRESSION [None]
  - FATIGUE [None]
  - MYALGIA [None]
